FAERS Safety Report 11511610 (Version 1)
Quarter: 2015Q3

REPORT INFORMATION
  Report Type: Spontaneous
  Country: US (occurrence: US)
  Receive Date: 20150915
  Receipt Date: 20150915
  Transmission Date: 20151125
  Serious: Yes (Other)
  Sender: FDA-Public Use
  Company Number: US-TAKEDA-TPA2013A06795

PATIENT

DRUGS (9)
  1. ACTOS [Suspect]
     Active Substance: PIOGLITAZONE HYDROCHLORIDE
     Indication: TYPE 2 DIABETES MELLITUS
     Dosage: STARTED AT 15 MG THEN 45 MG PER DAY
     Route: 048
     Dates: start: 2001, end: 2005
  2. GLUCOTROL [Concomitant]
     Active Substance: GLIPIZIDE
     Dosage: 15 MG, BID
     Dates: start: 2006
  3. ACTOS [Suspect]
     Active Substance: PIOGLITAZONE HYDROCHLORIDE
     Dosage: 45 MG, QD
     Route: 048
     Dates: start: 2004, end: 200901
  4. LEVEMIR [Concomitant]
     Active Substance: INSULIN DETEMIR
     Dosage: 20 MG, QD
     Dates: start: 2012
  5. BYETTA [Concomitant]
     Active Substance: EXENATIDE
     Dosage: 1000/50, BID
     Dates: start: 2007, end: 2010
  6. ACTOS [Suspect]
     Active Substance: PIOGLITAZONE HYDROCHLORIDE
     Dosage: 45 MG, QD
     Route: 048
     Dates: end: 201107
  7. METFORMIN [Concomitant]
     Active Substance: METFORMIN HYDROCHLORIDE
     Dosage: 500 MG, BID
     Dates: start: 2007, end: 2010
  8. GLUCOPHAGE [Concomitant]
     Active Substance: METFORMIN HYDROCHLORIDE
     Dosage: UNK
     Dates: start: 2004, end: 2008
  9. JANUVIA [Concomitant]
     Active Substance: SITAGLIPTIN PHOSPHATE
     Dosage: 100 MG, QD
     Dates: start: 2006

REACTIONS (1)
  - Bladder cancer [Recovered/Resolved]

NARRATIVE: CASE EVENT DATE: 20081228
